FAERS Safety Report 7949979-1 (Version None)
Quarter: 2011Q4

REPORT INFORMATION
  Report Type: 
  Country: None (occurrence: None)
  Receive Date: 20111130
  Receipt Date: 20111118
  Transmission Date: 20120403
  Serious: Yes (Other)
  Sender: FDA-Public Use
  Company Number: BR-BRISTOL-MYERS SQUIBB COMPANY-16251738

PATIENT
  Age: 56 Year
  Sex: Female

DRUGS (6)
  1. TIMOPTOL [Concomitant]
  2. METFFORMIN HYDROCHLORIDE [Suspect]
     Dates: start: 20080101
  3. ALGINAC [Suspect]
     Dates: start: 20111112, end: 20111117
  4. XALATAN [Concomitant]
  5. ALREX [Concomitant]
  6. MAXIDEX [Concomitant]

REACTIONS (3)
  - GLAUCOMA [None]
  - BLOOD PRESSURE INCREASED [None]
  - JOINT EFFUSION [None]
